FAERS Safety Report 7341292-9 (Version None)
Quarter: 2011Q1

REPORT INFORMATION
  Report Type: 
  Country: None (occurrence: None)
  Receive Date: 20110309
  Receipt Date: 20110304
  Transmission Date: 20110831
  Serious: Yes (Life-Threatening, Hospitalization, Other)
  Sender: FDA-Public Use
  Company Number: PHHO2010US17490

PATIENT
  Sex: Female
  Weight: 68.027 kg

DRUGS (9)
  1. GLYBURIDE [Concomitant]
  2. SAXAGLIPTIN [Concomitant]
  3. HYDROCODONE BITARTRATE [Concomitant]
  4. ALENDRONIC ACID [Concomitant]
  5. LOVENOX [Suspect]
  6. AFINITOR [Suspect]
     Indication: RENAL CELL CARCINOMA
     Dosage: 35MG/WEEK
     Route: 048
     Dates: start: 20100916, end: 20101110
  7. LIPITOR [Concomitant]
  8. COMPARATOR SORAFENIB [Suspect]
     Indication: RENAL CELL CARCINOMA
     Dosage: 400 MG, QD
     Route: 048
     Dates: start: 20100916, end: 20101110
  9. HYDROCHLOROTHIAZIDE [Concomitant]

REACTIONS (21)
  - LUNG INFILTRATION [None]
  - DIARRHOEA [None]
  - LYMPHADENOPATHY [None]
  - HAEMATOMA [None]
  - URINARY TRACT INFECTION [None]
  - PNEUMONIA [None]
  - SHOCK [None]
  - CARDIAC ARREST [None]
  - HYPOPHOSPHATAEMIA [None]
  - PERITONEAL HAEMORRHAGE [None]
  - ENDOTRACHEAL INTUBATION [None]
  - ABDOMINAL PAIN [None]
  - RESPIRATORY FAILURE [None]
  - NAUSEA [None]
  - DIZZINESS [None]
  - MENTAL STATUS CHANGES [None]
  - SEPSIS [None]
  - BRADYCARDIA [None]
  - HYPOTENSION [None]
  - PLEURAL EFFUSION [None]
  - ADRENAL INSUFFICIENCY [None]
